FAERS Safety Report 23304934 (Version 1)
Quarter: 2023Q4

REPORT INFORMATION
  Report Type: Other
  Country: PK (occurrence: None)
  Receive Date: 20231218
  Receipt Date: 20231218
  Transmission Date: 20240110
  Serious: Yes (Hospitalization)
  Sender: FDA-Public Use
  Company Number: PK-Square-000191

PATIENT
  Age: 42 Year
  Sex: Male

DRUGS (1)
  1. CALCIUM ACETATE [Suspect]
     Active Substance: CALCIUM ACETATE
     Indication: Product used for unknown indication
     Route: 048

REACTIONS (2)
  - Primary familial brain calcification [Recovered/Resolved]
  - Treatment noncompliance [Unknown]
